FAERS Safety Report 9275259 (Version 1)
Quarter: 2013Q2

REPORT INFORMATION
  Report Type: Spontaneous
  Country: GB (occurrence: GB)
  Receive Date: 20130507
  Receipt Date: 20130507
  Transmission Date: 20140414
  Serious: Yes (Other)
  Sender: FDA-Public Use
  Company Number: GB-JNJFOC-20130500086

PATIENT
  Sex: Male

DRUGS (2)
  1. STELARA [Suspect]
     Indication: PSORIASIS
     Route: 058
  2. BUDESONIDE [Concomitant]
     Route: 048

REACTIONS (2)
  - Asthma [Not Recovered/Not Resolved]
  - Psoriasis [Not Recovered/Not Resolved]
